APPROVED DRUG PRODUCT: ETODOLAC
Active Ingredient: ETODOLAC
Strength: 300MG
Dosage Form/Route: CAPSULE;ORAL
Application: A074929 | Product #001
Applicant: BIOPHARM DISCOVERY LLC
Approved: Jan 30, 1998 | RLD: No | RS: No | Type: DISCN